FAERS Safety Report 4514279-9 (Version None)
Quarter: 2004Q4

REPORT INFORMATION
  Report Type: 
  Country: None (occurrence: None)
  Receive Date: 20041126
  Receipt Date: 20041109
  Transmission Date: 20050328
  Serious: Yes (Hospitalization, Other)
  Sender: FDA-Public Use
  Company Number: 9259

PATIENT
  Age: 61 Year
  Sex: Female

DRUGS (1)
  1. METHOTREXATE [Suspect]
     Indication: BREAST CANCER
     Dosage: 155 MG ONCE IT
     Route: 037

REACTIONS (7)
  - ACCIDENTAL OVERDOSE [None]
  - AMNESIA [None]
  - CONFUSIONAL STATE [None]
  - CONVULSION [None]
  - HYPERTENSION [None]
  - MEDICATION ERROR [None]
  - SOMNOLENCE [None]
